FAERS Safety Report 7701003-1 (Version None)
Quarter: 2011Q3

REPORT INFORMATION
  Report Type: 
  Country: None (occurrence: None)
  Receive Date: 20110822
  Receipt Date: 20110809
  Transmission Date: 20111222
  Serious: Yes (Other)
  Sender: FDA-Public Use
  Company Number: US-BAYER-201040361NA

PATIENT
  Age: 18 Year
  Sex: Female
  Weight: 100 kg

DRUGS (5)
  1. MYLANTA [ALUMINIUM HYDROXIDE,MAGNESIUM HYDROXIDE,SIMETICONE] [Concomitant]
     Dosage: UNK UNK, QID
     Route: 048
     Dates: start: 20030401
  2. YAZ [Suspect]
     Indication: PREMENSTRUAL SYNDROME
  3. ORTHO EVRA [Concomitant]
     Dosage: UNK
     Dates: start: 20030401
  4. YAZ [Suspect]
     Indication: ORAL CONTRACEPTION
     Dosage: UNK UNK, UNK
     Route: 048
     Dates: start: 20010101, end: 20040201
  5. TAGAMET [Concomitant]
     Dosage: 300 MG, UNK
     Route: 048
     Dates: start: 20030401

REACTIONS (1)
  - CHOLECYSTECTOMY [None]
